FAERS Safety Report 5374587-9 (Version None)
Quarter: 2007Q2

REPORT INFORMATION
  Report Type: 
  Country: None (occurrence: None)
  Receive Date: 20070629
  Receipt Date: 20070618
  Transmission Date: 20071010
  Serious: Yes (Death)
  Sender: FDA-Public Use
  Company Number: JP-JNJFOC-20060403699

PATIENT
  Sex: Male

DRUGS (3)
  1. LOPERAMIDE HCL [Suspect]
     Indication: DIARRHOEA
     Route: 048
  2. RITUXIMAB [Interacting]
     Indication: LYMPHOMA
     Route: 041
  3. RITUXIMAB [Interacting]
     Indication: NON-HODGKIN'S LYMPHOMA
     Route: 041

REACTIONS (5)
  - BRONCHOSPASM [None]
  - CARDIAC FAILURE [None]
  - DRUG INTERACTION [None]
  - DYSPNOEA [None]
  - LYMPHOMA [None]
